FAERS Safety Report 21647778 (Version 3)
Quarter: 2022Q4

REPORT INFORMATION
  Report Type: Report from Study
  Country: US (occurrence: US)
  Receive Date: 20221128
  Receipt Date: 20221201
  Transmission Date: 20230113
  Serious: Yes (Hospitalization)
  Sender: FDA-Public Use
  Company Number: US-002147023-NVSC2022US263197

PATIENT

DRUGS (1)
  1. ENTRESTO [Suspect]
     Active Substance: SACUBITRIL\VALSARTAN
     Indication: Product used for unknown indication
     Dosage: 0.5 DOSAGE FORM (SPLITTING TABLETS IN ? )
     Route: 065

REACTIONS (3)
  - Myocardial infarction [Recovering/Resolving]
  - Weight decreased [Recovering/Resolving]
  - Wrong technique in product usage process [Unknown]
